FAERS Safety Report 11894472 (Version 1)
Quarter: 2016Q1

REPORT INFORMATION
  Report Type: Spontaneous
  Country: US (occurrence: US)
  Receive Date: 20160107
  Receipt Date: 20160107
  Transmission Date: 20160526
  Serious: No
  Sender: FDA-Public Use
  Company Number: US-BAYER-2016-003116

PATIENT
  Age: 60 Year
  Sex: Male
  Weight: 84.35 kg

DRUGS (3)
  1. PRESERVISION EYE VITAMIN AND MINERAL SUPPL. [Concomitant]
     Dosage: UNK
  2. OMEPRAZOLE. [Concomitant]
     Active Substance: OMEPRAZOLE
     Dosage: UNK
  3. MIRALAX [Suspect]
     Active Substance: POLYETHYLENE GLYCOL 3350
     Indication: DIAGNOSTIC PROCEDURE
     Dosage: 2 DF, QD
     Route: 048
     Dates: start: 20160102, end: 20160104

REACTIONS (4)
  - Dry skin [None]
  - Intentional product use issue [None]
  - Intentional product misuse [None]
  - Dry mouth [None]

NARRATIVE: CASE EVENT DATE: 201601
